FAERS Safety Report 18740819 (Version 1)
Quarter: 2021Q1

REPORT INFORMATION
  Report Type: Report from Study
  Country: CO (occurrence: CO)
  Receive Date: 20210114
  Receipt Date: 20210114
  Transmission Date: 20210419
  Serious: Yes (Hospitalization, Other)
  Sender: FDA-Public Use
  Company Number: NVSC2021CO004275

PATIENT
  Sex: Female
  Weight: 74 kg

DRUGS (3)
  1. ACETYLSALICYLIC ACID [Concomitant]
     Active Substance: ASPIRIN
     Indication: PRODUCT USED FOR UNKNOWN INDICATION
     Dosage: 100 MG, QD (2 MONTHS AGO)
     Route: 048
  2. TASIGNA [Suspect]
     Active Substance: NILOTINIB
     Indication: CHRONIC MYELOID LEUKAEMIA
     Dosage: 200 MG, Q12H
     Route: 048
     Dates: start: 2017, end: 20201215
  3. ATORVASTATIN [Suspect]
     Active Substance: ATORVASTATIN
     Indication: PRODUCT USED FOR UNKNOWN INDICATION
     Dosage: 40 MG, QD (2 MONTHS AGO)
     Route: 048

REACTIONS (11)
  - Hypothyroidism [Unknown]
  - Product dose omission issue [Unknown]
  - Peripheral arterial occlusive disease [Unknown]
  - Poor peripheral circulation [Unknown]
  - Inflammation [Unknown]
  - Osteitis [Unknown]
  - Skin discolouration [Unknown]
  - Arteritis [Unknown]
  - Impaired healing [Unknown]
  - Hypertension [Unknown]
  - Amputation stump pain [Unknown]
